FAERS Safety Report 4352816-8 (Version None)
Quarter: 2004Q2

REPORT INFORMATION
  Report Type: 
  Country: None (occurrence: None)
  Receive Date: 20040429
  Receipt Date: 20040414
  Transmission Date: 20050107
  Serious: Yes (Hospitalization)
  Sender: FDA-Public Use
  Company Number: 194689

PATIENT
  Age: 59 Year
  Sex: Male

DRUGS (13)
  1. AVONEX [Suspect]
     Indication: MULTIPLE SCLEROSIS
     Dosage: 30 MCG QW IM
     Route: 030
     Dates: start: 20020530
  2. AVONEX [Suspect]
     Indication: MULTIPLE SCLEROSIS
     Dosage: 30 MCG QW IM
     Route: 030
  3. ASPIRIN [Concomitant]
  4. ATENOLOL [Concomitant]
  5. PLAVIX [Concomitant]
  6. COUMADIN [Concomitant]
  7. OXYBUTYNIN [Concomitant]
  8. PROTONIX [Concomitant]
  9. PRAVACHOL [Concomitant]
  10. NITROGLYCERIN [Concomitant]
  11. CYANOCOBALAMIN [Concomitant]
  12. SALICYLIC ACID [Concomitant]
  13. PYRIDOXINE [Concomitant]

REACTIONS (1)
  - PNEUMONIA ASPIRATION [None]
